FAERS Safety Report 19960305 (Version 3)
Quarter: 2021Q4

REPORT INFORMATION
  Report Type: Report from Study
  Country: BE (occurrence: BE)
  Receive Date: 20211015
  Receipt Date: 20211130
  Transmission Date: 20220303
  Serious: Yes (Death, Life-Threatening, Hospitalization)
  Sender: FDA-Public Use
  Company Number: BE-DSJP-DSU-2021-130914

PATIENT
  Age: 38 Year
  Sex: Female
  Weight: 73.6 kg

DRUGS (1)
  1. ENHERTU [Suspect]
     Active Substance: FAM-TRASTUZUMAB DERUXTECAN-NXKI
     Indication: Breast cancer
     Dosage: 4 VIALS , ONCE EVERY 3 WK (1X)
     Route: 042
     Dates: start: 20210903, end: 20210903

REACTIONS (4)
  - Septic shock [Fatal]
  - Febrile neutropenia [Fatal]
  - Sepsis [Fatal]
  - Disseminated intravascular coagulation [Fatal]

NARRATIVE: CASE EVENT DATE: 20210901
